FAERS Safety Report 11727788 (Version 1)
Quarter: 2015Q4

REPORT INFORMATION
  Report Type: Spontaneous
  Country: US (occurrence: US)
  Receive Date: 20151110
  Receipt Date: 20151110
  Transmission Date: 20160304
  Serious: No
  Sender: FDA-Public Use
  Company Number: US-ELI_LILLY_AND_COMPANY-US201110006011

PATIENT
  Sex: Female

DRUGS (2)
  1. FORTEO [Suspect]
     Active Substance: TERIPARATIDE
     Indication: OSTEOPOROSIS
     Dosage: 20 UG, QD
     Dates: start: 20100527
  2. STATIN                             /00084401/ [Concomitant]

REACTIONS (6)
  - Swelling [Unknown]
  - Muscle spasms [Unknown]
  - Muscle tightness [Unknown]
  - Myalgia [Unknown]
  - Pain in extremity [Unknown]
  - Drug dose omission [Unknown]
